FAERS Safety Report 10172457 (Version 1)
Quarter: 2014Q2

REPORT INFORMATION
  Report Type: Spontaneous
  Country: US (occurrence: US)
  Receive Date: 20140515
  Receipt Date: 20140515
  Transmission Date: 20141212
  Serious: Yes (Other)
  Sender: FDA-Public Use
  Company Number: US-BAYER-2014-067624

PATIENT
  Age: 72 Year
  Sex: Female

DRUGS (1)
  1. GADAVIST [Suspect]
     Dosage: 5.8 ML, ONCE

REACTIONS (5)
  - Choking sensation [None]
  - Dysphonia [None]
  - Rash [None]
  - Flushing [None]
  - Urticaria [None]
